FAERS Safety Report 8559519-4 (Version None)
Quarter: 2012Q3

REPORT INFORMATION
  Report Type: 
  Country: None (occurrence: None)
  Receive Date: 20120802
  Receipt Date: 20120725
  Transmission Date: 20120928
  Serious: Yes (Hospitalization)
  Sender: FDA-Public Use
  Company Number: JP-BAYER-2012-035630

PATIENT
  Age: 71 Year
  Sex: Male
  Weight: 67 kg

DRUGS (15)
  1. SHAKUYAKUKANZOUTOU [Concomitant]
     Dosage: DAILY DOSE 7.5 G
     Route: 048
  2. NEXAVAR [Suspect]
     Dosage: DAILY DOSE 400 MG
     Dates: start: 20120427
  3. ADALAT CC [Concomitant]
     Indication: HYPERTENSION
     Dosage: DAILY DOSE 20 MG
     Route: 048
     Dates: start: 20120207, end: 20120217
  4. ADALAT CC [Concomitant]
     Dosage: DAILY DOSE 40 MG
     Route: 048
     Dates: start: 20120218, end: 20120414
  5. MIRACLID [Concomitant]
     Dosage: 100000 U
     Route: 042
     Dates: start: 20120407, end: 20120409
  6. LASIX [Concomitant]
     Dosage: DAILY DOSE 20 MG
     Route: 042
     Dates: start: 20120407, end: 20120411
  7. LIVACT [Concomitant]
     Dosage: DAILY DOSE 12.45 G
     Route: 048
  8. PASTARON [Concomitant]
     Dosage: UNK
     Route: 061
  9. PURSENNID [Concomitant]
     Dosage: DAILY DOSE 24 MG
     Route: 048
     Dates: start: 20120207
  10. OMEPRAZOLE [Concomitant]
     Dosage: DAILY DOSE 20 MG
     Route: 048
  11. ADALAT CC [Concomitant]
     Dosage: 20 MG, QD
     Dates: start: 20120415
  12. MAGMITT [Concomitant]
     Dosage: DAILY DOSE 990 MG
     Route: 048
     Dates: start: 20120210, end: 20120217
  13. ALBUMIN (HUMAN) [Concomitant]
     Dosage: UNK
     Route: 042
     Dates: start: 20120407, end: 20120409
  14. NEXAVAR [Suspect]
     Indication: HEPATIC NEOPLASM MALIGNANT
     Dosage: DAILY DOSE 400 MG
     Route: 048
     Dates: start: 20120203, end: 20120409
  15. PORTOLAC [Concomitant]
     Dosage: DAILY DOSE 36 G
     Route: 048

REACTIONS (2)
  - ASCITES [None]
  - HYPERTENSION [None]
